FAERS Safety Report 16251267 (Version 1)
Quarter: 2019Q2

REPORT INFORMATION
  Report Type: Spontaneous
  Country: US (occurrence: US)
  Receive Date: 20190426
  Receipt Date: 20190426
  Transmission Date: 20190711
  Serious: Yes (Disabling, Other)
  Sender: FDA-Public Use
  Company Number: None

PATIENT
  Age: 61 Year
  Sex: Male
  Weight: 135 kg

DRUGS (4)
  1. HYDROCODONE-ACETAMIMINOPHEN [Suspect]
     Active Substance: ACETAMINOPHEN\HYDROCODONE
     Indication: INTERVERTEBRAL DISC PROTRUSION
     Dosage: ?          QUANTITY:1 TABLET(S);?
     Route: 048
     Dates: start: 20190418, end: 20190424
  2. LOSARTAN/HCL [Concomitant]
  3. METOPROLOL. [Concomitant]
     Active Substance: METOPROLOL
  4. VITAMIN B12 [Concomitant]
     Active Substance: CYANOCOBALAMIN

REACTIONS (8)
  - Condition aggravated [None]
  - Product contamination [None]
  - Weight decreased [None]
  - Gluten sensitivity [None]
  - Product substitution issue [None]
  - Diarrhoea [None]
  - Coeliac disease [None]
  - Malaise [None]
